FAERS Safety Report 5113866-7 (Version None)
Quarter: 2006Q3

REPORT INFORMATION
  Report Type: 
  Country: None (occurrence: None)
  Receive Date: 20060925
  Receipt Date: 20060915
  Transmission Date: 20061208
  Serious: Yes (Hospitalization)
  Sender: FDA-Public Use
  Company Number: US-ROCHE-463336

PATIENT
  Age: 69 Year
  Sex: Female
  Weight: 49 kg

DRUGS (3)
  1. CAPECITABINE [Suspect]
     Indication: PANCREATIC CARCINOMA
     Route: 065
  2. ERLOTINIB [Suspect]
     Indication: PANCREATIC CARCINOMA
     Route: 048
  3. GENERIC UNKNOWN [Concomitant]
     Dosage: REPORTED AS: RADIOTHERAPY

REACTIONS (2)
  - INCISION SITE COMPLICATION [None]
  - WOUND COMPLICATION [None]
